FAERS Safety Report 15782068 (Version 10)
Quarter: 2023Q1

REPORT INFORMATION
  Report Type: Spontaneous
  Country: US (occurrence: US)
  Receive Date: 20190102
  Receipt Date: 20230130
  Transmission Date: 20230417
  Serious: Yes (Hospitalization, Other)
  Sender: FDA-Public Use
  Company Number: US-PFIZER INC-2019000150

PATIENT
  Age: 76 Year
  Sex: Female

DRUGS (1)
  1. XELJANZ XR [Suspect]
     Active Substance: TOFACITINIB CITRATE
     Dosage: 11 MG, 1X/DAY

REACTIONS (8)
  - COVID-19 [Unknown]
  - Hip fracture [Unknown]
  - Increased appetite [Unknown]
  - Haemoglobin decreased [Unknown]
  - Bradyphrenia [Unknown]
  - Pain [Unknown]
  - Blood cholesterol increased [Unknown]
  - Arthritis [Unknown]

NARRATIVE: CASE EVENT DATE: 20180101
